FAERS Safety Report 8726646 (Version 3)
Quarter: 2012Q4

REPORT INFORMATION
  Report Type: Report from Study
  Country: US (occurrence: US)
  Receive Date: 20120816
  Receipt Date: 20120907
  Transmission Date: 20130627
  Serious: Yes (Hospitalization, Other)
  Sender: FDA-Public Use
  Company Number: US-PURDUE-USA-2012-0091462

PATIENT
  Age: 44 None
  Sex: Male

DRUGS (1)
  1. OXYCONTIN (NDA 22-272) [Suspect]
     Indication: PRODUCT USED FOR UNKNOWN INDICATION
     Dosage: 160 mg, q12h
     Route: 048

REACTIONS (6)
  - Road traffic accident [Recovered/Resolved]
  - Rib fracture [Unknown]
  - Scapula fracture [Unknown]
  - Spinal column injury [Unknown]
  - Traumatic lung injury [Unknown]
  - Pulmonary haemorrhage [Unknown]
